FAERS Safety Report 14173955 (Version 1)
Quarter: 2017Q4

REPORT INFORMATION
  Report Type: Spontaneous
  Country: EG (occurrence: EG)
  Receive Date: 20171109
  Receipt Date: 20171109
  Transmission Date: 20180321
  Serious: Yes (Death, Hospitalization, Other)
  Sender: FDA-Public Use
  Company Number: EG-ASTELLAS-2017US043104

PATIENT
  Age: 56 Year
  Sex: Male

DRUGS (3)
  1. PROGRAF [Suspect]
     Active Substance: TACROLIMUS\TACROLIMUS ANHYDROUS
     Indication: CHRONIC ALLOGRAFT NEPHROPATHY
  2. PROGRAF [Suspect]
     Active Substance: TACROLIMUS\TACROLIMUS ANHYDROUS
     Indication: RENAL TRANSPLANT
     Dosage: UNK UNK, UNKNOWN FREQ.
     Route: 065
     Dates: start: 2008
  3. MYCOPHENOLATE MOFETIL. [Suspect]
     Active Substance: MYCOPHENOLATE MOFETIL
     Indication: RENAL TRANSPLANT
     Dosage: UNK, UNKNOWN FREQ.
     Route: 065

REACTIONS (10)
  - Lactic acidosis [Unknown]
  - Sepsis [Unknown]
  - Hepatic cirrhosis [Fatal]
  - Opportunistic infection [Recovering/Resolving]
  - Tooth abscess [Unknown]
  - Ludwig angina [Recovered/Resolved]
  - Dental caries [Unknown]
  - Metabolic acidosis [Recovering/Resolving]
  - Chronic hepatitis C [Unknown]
  - Hypotension [Unknown]
